FAERS Safety Report 5265777-4 (Version None)
Quarter: 2007Q1

REPORT INFORMATION
  Report Type: 
  Country: None (occurrence: None)
  Receive Date: 20061213
  Receipt Date: 20050118
  Transmission Date: 20070707
  Serious: Yes (Other)
  Sender: FDA-Public Use
  Company Number: 2004UW25964

PATIENT
  Age: 82 Year
  Sex: Male

DRUGS (3)
  1. IRESSA [Suspect]
     Indication: LUNG NEOPLASM MALIGNANT
     Dosage: 250 MG QD PO
     Route: 048
     Dates: end: 20040801
  2. IRESSA [Suspect]
     Indication: LUNG NEOPLASM MALIGNANT
     Dosage: 125 MG QD PO
     Route: 048
     Dates: start: 20040801
  3. LIPITOR [Concomitant]

REACTIONS (2)
  - ASTHENIA [None]
  - SKIN DISORDER [None]
